FAERS Safety Report 4573921-7 (Version None)
Quarter: 2005Q1

REPORT INFORMATION
  Report Type: 
  Country: None (occurrence: None)
  Receive Date: 20050203
  Receipt Date: 20040520
  Transmission Date: 20050727
  Serious: Yes (Hospitalization)
  Sender: FDA-Public Use
  Company Number: 2004-BP-03903AU

PATIENT
  Age: 82 Year
  Sex: Male

DRUGS (1)
  1. MOBIC [Suspect]
     Dosage: 15 MG (NR)
     Route: 048
     Dates: start: 20040314

REACTIONS (3)
  - ATRIAL FIBRILLATION [None]
  - DUODENAL ULCER PERFORATION [None]
  - POST PROCEDURAL COMPLICATION [None]
